FAERS Safety Report 9511679 (Version 1)
Quarter: 2013Q1

REPORT INFORMATION
  Report Type: Spontaneous
  Country: US (occurrence: None)
  Receive Date: 20130305
  Receipt Date: 20130305
  Transmission Date: 20140127
  Serious: Yes (Other)
  Sender: FDA-Public Use
  Company Number: 163-21880-12030574

PATIENT
  Age: 62 Year
  Sex: Female
  Weight: 56.7 kg

DRUGS (11)
  1. REVLIMID [Suspect]
     Indication: PLASMA CELL MYELOMA
     Dosage: 10 MG, QD X 21 DAYS, 7 DAYS OFF, PO
     Route: 048
     Dates: start: 20120213
  2. FOLIC ACID (FOLIC ACID) (UNKNOWN) [Concomitant]
  3. HYZAAR (HYZAAR) (UNKNOWN) [Concomitant]
  4. VITAMIN D (ERGOCALCIFEROL) (UNKNOWN) [Concomitant]
  5. CRESTOR (ROSUVASTATIN) (UNKNOWN) [Concomitant]
  6. DEXAMETHASONE (DEXAMETHASONE) (UNKNOWN) [Concomitant]
  7. VITAMIN B12 (CYANOCOBALAMIN) (UNKNOWN) [Concomitant]
  8. NIACIN (NICOTINIC ACID) (UNKNOWN) [Concomitant]
  9. VITAMIN E (TOCOPHEROL) (UNKNOWN) [Concomitant]
  10. ASPIRIN (ACETYLSALICYLIC ACID) (UNKNOWN) (ACETYLSALICYLIC ACID) [Concomitant]
  11. MVI (MVI) (UNKNOWN) [Concomitant]

REACTIONS (3)
  - Platelet count decreased [None]
  - White blood cell count decreased [None]
  - Pyrexia [None]
